FAERS Safety Report 6710549-4 (Version None)
Quarter: 2010Q2

REPORT INFORMATION
  Report Type: 
  Country: None (occurrence: None)
  Receive Date: 20100504
  Receipt Date: 20100426
  Transmission Date: 20101027
  Serious: Yes (Other)
  Sender: FDA-Public Use
  Company Number: ZA-GILEAD-2010-0027486

PATIENT
  Age: 29 Year
  Sex: Female

DRUGS (4)
  1. TRUVADA [Suspect]
     Indication: HIV INFECTION
     Route: 048
     Dates: start: 20080226, end: 20080620
  2. TRUVADA [Suspect]
     Route: 048
     Dates: start: 20080814
  3. VIRAMUNE [Suspect]
     Indication: HIV INFECTION
     Dates: start: 20080226
  4. COMBIVIR [Suspect]
     Indication: HIV INFECTION
     Route: 048
     Dates: start: 20080621, end: 20080813

REACTIONS (1)
  - ABORTION SPONTANEOUS [None]
